FAERS Safety Report 9549825 (Version 4)
Quarter: 2014Q2

REPORT INFORMATION
  Report Type: Spontaneous
  Country: US (occurrence: US)
  Receive Date: 20130924
  Receipt Date: 20140522
  Transmission Date: 20141212
  Serious: No
  Sender: FDA-Public Use
  Company Number: US-009507513-1309USA010322

PATIENT
  Sex: Male
  Weight: 89.34 kg

DRUGS (6)
  1. PROPECIA [Suspect]
     Indication: ALOPECIA
     Dosage: 1 MG, QD
     Route: 048
     Dates: start: 20010709, end: 20071214
  2. PROPECIA [Suspect]
     Indication: ANDROGENETIC ALOPECIA
     Dosage: 1 MG, UNK
     Route: 048
     Dates: start: 20090407
  3. FINASTERIDE [Suspect]
     Indication: ALOPECIA
     Dosage: 5 MG, QD
     Route: 048
     Dates: start: 20080307, end: 20090416
  4. FINASTERIDE [Suspect]
     Indication: ANDROGENETIC ALOPECIA
  5. FINASTERIDE [Suspect]
     Indication: ALOPECIA
     Dosage: 5 MG, UNK
     Route: 048
     Dates: end: 20111223
  6. FINASTERIDE [Suspect]
     Indication: ANDROGENETIC ALOPECIA

REACTIONS (18)
  - Cognitive disorder [Not Recovered/Not Resolved]
  - Anxiety [Not Recovered/Not Resolved]
  - Blood testosterone decreased [Unknown]
  - Knee operation [Unknown]
  - Paraesthesia [Unknown]
  - Libido disorder [Unknown]
  - Hypogonadism [Unknown]
  - Emotional disorder [Unknown]
  - Conjunctivitis [Not Recovered/Not Resolved]
  - Fatigue [Unknown]
  - Sexual dysfunction [Not Recovered/Not Resolved]
  - Depression [Not Recovered/Not Resolved]
  - Erectile dysfunction [Not Recovered/Not Resolved]
  - Gynaecomastia [Unknown]
  - Bipolar I disorder [Unknown]
  - Insomnia [Unknown]
  - Stress [Unknown]
  - Drug administration error [Unknown]
